FAERS Safety Report 4737605-4 (Version None)
Quarter: 2005Q3

REPORT INFORMATION
  Report Type: 
  Country: None (occurrence: None)
  Receive Date: 20050809
  Receipt Date: 20050520
  Transmission Date: 20060218
  Serious: No
  Sender: FDA-Public Use
  Company Number: US-GLAXOSMITHKLINE-A0559517A

PATIENT
  Age: 67 Year
  Sex: Male

DRUGS (1)
  1. COMMIT [Suspect]

REACTIONS (1)
  - BLOOD GLUCOSE INCREASED [None]
